FAERS Safety Report 7403183-4 (Version None)
Quarter: 2011Q2

REPORT INFORMATION
  Report Type: 
  Country: None (occurrence: None)
  Receive Date: 20110408
  Receipt Date: 20110329
  Transmission Date: 20111010
  Serious: Yes (Hospitalization, Other)
  Sender: FDA-Public Use
  Company Number: BR-SANOFI-AVENTIS-2011SA019545

PATIENT
  Sex: Female
  Weight: 63 kg

DRUGS (4)
  1. LANTUS [Suspect]
     Route: 058
  2. ALL OTHER THERAPEUTIC PRODUCTS [Concomitant]
  3. SUSTRATE [Concomitant]
  4. ALL OTHER THERAPEUTIC PRODUCTS [Concomitant]

REACTIONS (15)
  - THROMBOSIS [None]
  - DYSPNOEA [None]
  - FALL [None]
  - RIB FRACTURE [None]
  - SLUGGISHNESS [None]
  - INJECTION SITE DISCOLOURATION [None]
  - PELVIC FRACTURE [None]
  - COMA [None]
  - VOMITING [None]
  - TREMOR [None]
  - INFECTION [None]
  - CARDIAC DISORDER [None]
  - HYPERGLYCAEMIA [None]
  - HYPOGLYCAEMIA [None]
  - GASTRIC DISORDER [None]
